FAERS Safety Report 4568210-0 (Version None)
Quarter: 2005Q1

REPORT INFORMATION
  Report Type: 
  Country: None (occurrence: None)
  Receive Date: 20050131
  Receipt Date: 20050120
  Transmission Date: 20050727
  Serious: Yes (Life-Threatening)
  Sender: FDA-Public Use
  Company Number: 200510128GDS

PATIENT
  Age: 84 Year
  Sex: Male

DRUGS (6)
  1. ADALAT [Suspect]
     Dosage: 20 MG, TOTAL DAILY, ORAL
     Route: 048
  2. CO-RENITEC [Concomitant]
  3. DOMINAL FORTE [Concomitant]
  4. GEMACALM [Concomitant]
  5. HALDOL [Concomitant]
  6. RISPERDAL [Concomitant]

REACTIONS (2)
  - ANGIONEUROTIC OEDEMA [None]
  - LARYNGEAL OEDEMA [None]
